FAERS Safety Report 25240769 (Version 1)
Quarter: 2025Q2

REPORT INFORMATION
  Report Type: Spontaneous
  Country: US (occurrence: US)
  Receive Date: 20250425
  Receipt Date: 20250425
  Transmission Date: 20250716
  Serious: Yes (Other)
  Sender: BLUEPRINT MEDICINES
  Company Number: US-Blueprint Medicines Corporation-2025-AER-00829

PATIENT
  Age: 74 Year
  Sex: Female

DRUGS (1)
  1. AYVAKIT [Suspect]
     Active Substance: AVAPRITINIB
     Indication: Uterine cancer
     Route: 065

REACTIONS (4)
  - Surgery [Unknown]
  - Keloid scar [Unknown]
  - Eye swelling [Unknown]
  - Swelling face [Unknown]
